FAERS Safety Report 9909615 (Version 5)
Quarter: 2016Q1

REPORT INFORMATION
  Report Type: Spontaneous
  Country: US (occurrence: US)
  Receive Date: 20140219
  Receipt Date: 20160203
  Transmission Date: 20160526
  Serious: Yes (Hospitalization, Other)
  Sender: FDA-Public Use
  Company Number: US-GLAXOSMITHKLINE-A1060467A

PATIENT
  Sex: Female

DRUGS (10)
  1. SYNTHROID [Concomitant]
     Active Substance: LEVOTHYROXINE SODIUM
  2. TRAZODONE [Concomitant]
     Active Substance: TRAZODONE HYDROCHLORIDE
  3. LAMOTRIGINE. [Suspect]
     Active Substance: LAMOTRIGINE
     Indication: SEIZURE
     Dosage: 150 MG, U
     Dates: start: 2012
  4. MULTIVITAMINS [Concomitant]
     Active Substance: VITAMINS
  5. BUPROPION. [Concomitant]
     Active Substance: BUPROPION
  6. LAMICTAL [Suspect]
     Active Substance: LAMOTRIGINE
     Indication: EPILEPSY
     Dosage: VARIABLE DAILY DOSING
     Route: 048
     Dates: start: 2001
  7. LIPITOR [Concomitant]
     Active Substance: ATORVASTATIN CALCIUM
  8. ALPRAZOLAM. [Concomitant]
     Active Substance: ALPRAZOLAM
  9. NAPROXEN. [Concomitant]
     Active Substance: NAPROXEN
  10. CLONAZEPAM. [Concomitant]
     Active Substance: CLONAZEPAM

REACTIONS (9)
  - Shoulder operation [Unknown]
  - Tachyphrenia [Unknown]
  - Seizure [Unknown]
  - Mental disorder [Unknown]
  - Adverse event [Unknown]
  - Ventricular tachycardia [Unknown]
  - Hypersensitivity [Unknown]
  - Arterial spasm [Unknown]
  - Rash [Unknown]

NARRATIVE: CASE EVENT DATE: 2013
